FAERS Safety Report 7362140-7 (Version None)
Quarter: 2011Q1

REPORT INFORMATION
  Report Type: 
  Country: None (occurrence: None)
  Receive Date: 20110318
  Receipt Date: 20110223
  Transmission Date: 20110831
  Serious: Yes (Hospitalization, Other)
  Sender: FDA-Public Use
  Company Number: US-BAYER-2011-017710

PATIENT
  Sex: Female
  Weight: 64.853 kg

DRUGS (3)
  1. MAGNEVIST [Suspect]
     Indication: NUCLEAR MAGNETIC RESONANCE IMAGING BRAIN
     Dosage: 13 ML, ONCE
     Dates: start: 20110222, end: 20110222
  2. MECLIZINE [Concomitant]
  3. PROMETHAZINE [Concomitant]

REACTIONS (2)
  - HYPOAESTHESIA [None]
  - CHEST DISCOMFORT [None]
